FAERS Safety Report 25198600 (Version 1)
Quarter: 2025Q2

REPORT INFORMATION
  Report Type: Spontaneous
  Country: US (occurrence: None)
  Receive Date: 20250414
  Receipt Date: 20250414
  Transmission Date: 20250717
  Serious: Yes (Death)
  Sender: FDA-CTU
  Company Number: None

PATIENT
  Sex: Male

DRUGS (7)
  1. PIRFENIDONE [Suspect]
     Active Substance: PIRFENIDONE
     Indication: Idiopathic pulmonary fibrosis
     Dosage: TAKE 3 CAPSULES BY MOUTH THREE TIMES DAILY?
     Route: 048
     Dates: start: 20230307
  2. ASPIRIN [Concomitant]
     Active Substance: ASPIRIN
  3. CRESTOR [Concomitant]
     Active Substance: ROSUVASTATIN CALCIUM
  4. DILTIAZEM [Concomitant]
     Active Substance: DILTIAZEM
  5. ESBRIET [Concomitant]
     Active Substance: PIRFENIDONE
  6. RAMIPRIL [Concomitant]
     Active Substance: RAMIPRIL
  7. ZETIA [Concomitant]
     Active Substance: EZETIMIBE

REACTIONS (1)
  - Death [None]
